FAERS Safety Report 5255712-7 (Version None)
Quarter: 2007Q1

REPORT INFORMATION
  Report Type: 
  Country: None (occurrence: None)
  Receive Date: 20070305
  Receipt Date: 20070227
  Transmission Date: 20070707
  Serious: Yes (Disabling)
  Sender: FDA-Public Use
  Company Number: US-MERCK-0702USA01151

PATIENT
  Age: 60 Year
  Sex: Male
  Weight: 99 kg

DRUGS (2)
  1. JANUVIA [Suspect]
     Indication: DIABETES MELLITUS
     Route: 048
     Dates: start: 20070118, end: 20070201
  2. JANUVIA [Suspect]
     Route: 048
     Dates: start: 20070201

REACTIONS (1)
  - HEADACHE [None]
